FAERS Safety Report 10210964 (Version 1)
Quarter: 2014Q2

REPORT INFORMATION
  Report Type: Spontaneous
  Country: GB (occurrence: GB)
  Receive Date: 20140602
  Receipt Date: 20140602
  Transmission Date: 20141212
  Serious: Yes (Disabling, Congenital Anomaly)
  Sender: FDA-Public Use
  Company Number: GB-WATSON-2014-11269

PATIENT
  Sex: Female
  Weight: 3 kg

DRUGS (10)
  1. ARIPIPRAZOLE (UNKNOWN) [Suspect]
     Indication: SCHIZOPHRENIA
     Dosage: 30 MG, DAILY
     Route: 064
  2. MIRTAZAPINE (UNKNOWN) [Suspect]
     Indication: SCHIZOPHRENIA
     Dosage: 300 MG, DAILY
     Route: 064
  3. ZOPICLONE (UNKNOWN) [Suspect]
     Indication: SCHIZOPHRENIA
     Dosage: 3.75 MG, DAILY
     Route: 064
  4. LAMOTRIGINE (UNKNOWN) [Suspect]
     Indication: SCHIZOPHRENIA
     Dosage: 300 MG, DAILY
     Route: 064
  5. PROCYCLIDINE [Suspect]
     Indication: SCHIZOPHRENIA
     Dosage: 5 MG, DAILY
     Route: 064
  6. NICORETTESKIN [Concomitant]
     Indication: PRODUCT USED FOR UNKNOWN INDICATION
     Dosage: UNK
     Route: 064
     Dates: start: 20130808
  7. VENTOLIN                           /00139502/ [Concomitant]
     Indication: PRODUCT USED FOR UNKNOWN INDICATION
     Dosage: UNK
     Route: 064
     Dates: start: 20131129
  8. CEFALEXIN [Concomitant]
     Indication: URINARY TRACT INFECTION
     Dosage: UNK
     Route: 064
     Dates: start: 20130827
  9. CYCLIZINE [Concomitant]
     Indication: PRODUCT USED FOR UNKNOWN INDICATION
     Dosage: UNK
     Route: 064
     Dates: start: 20130902
  10. CLARITHROMYCIN [Concomitant]
     Indication: PRODUCT USED FOR UNKNOWN INDICATION
     Dosage: UNK
     Route: 064
     Dates: start: 20131129

REACTIONS (4)
  - Developmental hip dysplasia [Unknown]
  - Agitation neonatal [Unknown]
  - Feeding disorder neonatal [Unknown]
  - Muscular weakness [Unknown]
